FAERS Safety Report 6336752-3 (Version None)
Quarter: 2009Q3

REPORT INFORMATION
  Report Type: 
  Country: None (occurrence: None)
  Receive Date: 20090901
  Receipt Date: 20090821
  Transmission Date: 20100115
  Serious: Yes (Hospitalization, Disabling)
  Sender: FDA-Public Use
  Company Number: TR-GILEAD-2009-0023587

PATIENT
  Sex: Female
  Weight: 60 kg

DRUGS (1)
  1. VIREAD [Suspect]
     Indication: HEPATITIS B
     Route: 048
     Dates: start: 20081127

REACTIONS (2)
  - OSTEOPENIA [None]
  - OSTEOPOROSIS [None]
